FAERS Safety Report 9709456 (Version 1)
Quarter: 2013Q4

REPORT INFORMATION
  Report Type: Spontaneous
  Country: CN (occurrence: CN)
  Receive Date: 20131126
  Receipt Date: 20131126
  Transmission Date: 20140711
  Serious: Yes (Hospitalization, Other)
  Sender: FDA-Public Use
  Company Number: CN-ROXANE LABORATORIES, INC.-2013-RO-01866RO

PATIENT
  Age: 49 Year
  Sex: Female

DRUGS (7)
  1. LORAZEPAM [Suspect]
     Dosage: 2 MG
  2. ZOLPIDEM [Suspect]
     Route: 048
  3. ZOLPIDEM [Suspect]
     Dosage: 50 MG
  4. GLICLAZIDE MR [Suspect]
  5. METOPROLOL [Suspect]
  6. CHLORPROMAZINE [Suspect]
  7. FLUOXETINE [Suspect]

REACTIONS (6)
  - Stress cardiomyopathy [Unknown]
  - Withdrawal syndrome [Unknown]
  - Overdose [Unknown]
  - Drug dependence [Unknown]
  - Grand mal convulsion [Unknown]
  - Metabolic acidosis [Unknown]
